FAERS Safety Report 8251484-2 (Version None)
Quarter: 2012Q2

REPORT INFORMATION
  Report Type: 
  Country: None (occurrence: None)
  Receive Date: 20120402
  Receipt Date: 20120326
  Transmission Date: 20120825
  Serious: Yes (Other)
  Sender: FDA-Public Use
  Company Number: US-ASTRAZENECA-2011SE68882

PATIENT
  Age: 75 Year
  Sex: Female
  Weight: 59.9 kg

DRUGS (22)
  1. SEROQUEL [Suspect]
     Route: 048
     Dates: start: 20100101
  2. UNIVACS [Concomitant]
     Dosage: 2 TABLETS EVERY DAY
  3. SEROQUEL [Suspect]
     Route: 048
  4. ZOLAS [Concomitant]
     Indication: DEPRESSION
  5. SEROQUEL [Suspect]
     Indication: INSOMNIA
     Dosage: 50 MG ONCE OR TWICE AT NIGHT
     Route: 048
  6. SEROQUEL [Suspect]
     Route: 048
  7. ASPIRIN [Concomitant]
     Indication: BLOOD CHOLESTEROL ABNORMAL
  8. SEROQUEL [Suspect]
     Indication: DEPRESSION
     Dosage: 50 MG ONCE OR TWICE AT NIGHT
     Route: 048
  9. SEROQUEL [Suspect]
     Route: 048
  10. SEROQUEL [Suspect]
     Route: 048
     Dates: start: 20100101
  11. UNIVACS [Concomitant]
     Indication: DEPRESSION
  12. SEROQUEL [Suspect]
     Route: 048
     Dates: start: 20100101
  13. SEROQUEL [Suspect]
     Route: 048
     Dates: start: 20100101
  14. SEROQUEL [Suspect]
     Indication: SLEEP DISORDER
     Dosage: 50 MG ONCE OR TWICE AT NIGHT
     Route: 048
  15. SEROQUEL [Suspect]
     Indication: BIPOLAR I DISORDER
     Dosage: 50 MG ONCE OR TWICE AT NIGHT
     Route: 048
  16. SEROQUEL [Suspect]
     Route: 048
  17. UNIVACS [Concomitant]
     Indication: HYPERTENSION
  18. UNIVACS [Concomitant]
     Indication: CARDIAC DISORDER
  19. UNIVACS [Concomitant]
     Dosage: 2 TABLETS EVERY DAY
  20. UNIVACS [Concomitant]
     Dosage: 2 TABLETS EVERY DAY
  21. ABILIFY [Concomitant]
     Dates: end: 20110901
  22. ZOLOFT [Concomitant]
     Indication: DEPRESSION

REACTIONS (18)
  - AGITATION [None]
  - DECREASED INTEREST [None]
  - WEIGHT INCREASED [None]
  - INCREASED APPETITE [None]
  - SOMNOLENCE [None]
  - FATIGUE [None]
  - VISION BLURRED [None]
  - ASTHENIA [None]
  - LEUKAEMIA [None]
  - FEELING COLD [None]
  - BLOOD PRESSURE DECREASED [None]
  - INTENTIONAL DRUG MISUSE [None]
  - CYSTITIS NONINFECTIVE [None]
  - ANXIETY [None]
  - SINUSITIS [None]
  - INSOMNIA [None]
  - CYSTITIS [None]
  - DEPRESSED MOOD [None]
